FAERS Safety Report 6666578-2 (Version None)
Quarter: 2010Q2

REPORT INFORMATION
  Report Type: 
  Country: None (occurrence: None)
  Receive Date: 20100404
  Receipt Date: 20090414
  Transmission Date: 20101027
  Serious: No
  Sender: FDA-Public Use
  Company Number: US-ALLERGAN-0905132US

PATIENT
  Age: 22 Year
  Sex: Female

DRUGS (2)
  1. ZYMAR [Suspect]
     Indication: ULCERATIVE KERATITIS
     Dosage: 1 GTT, Q 15 MIN
     Route: 047
  2. ZYMAR [Suspect]
     Dosage: 1 GTT, Q1HR
     Route: 047

REACTIONS (1)
  - NAUSEA [None]
